FAERS Safety Report 4724905-7 (Version None)
Quarter: 2005Q3

REPORT INFORMATION
  Report Type: 
  Country: None (occurrence: None)
  Receive Date: 20050726
  Receipt Date: 20050716
  Transmission Date: 20060218
  Serious: Yes (Life-Threatening)
  Sender: FDA-Public Use
  Company Number: GB-JNJFOC-20050703152

PATIENT
  Age: 40 Year
  Sex: Female

DRUGS (5)
  1. DURAGESIC-100 [Suspect]
     Indication: FIBROMYALGIA
     Route: 062
  2. THYROXINE [Concomitant]
     Indication: HYPOTHYROIDISM
     Route: 048
  3. CITALOPRAM [Concomitant]
     Indication: ANXIETY
     Route: 048
  4. TRAMADOL HCL [Concomitant]
     Indication: PAIN
     Dosage: 50-100MG QDS
     Route: 048
  5. ACETAMINOPHEN [Concomitant]
     Indication: PAIN
     Dosage: PRN
     Route: 048

REACTIONS (4)
  - DIZZINESS [None]
  - PRURITUS GENERALISED [None]
  - RESPIRATORY RATE DECREASED [None]
  - SWELLING FACE [None]
